FAERS Safety Report 6202714-X (Version None)
Quarter: 2009Q2

REPORT INFORMATION
  Report Type: 
  Country: None (occurrence: None)
  Receive Date: 20090526
  Receipt Date: 20090518
  Transmission Date: 20091009
  Serious: No
  Sender: FDA-Public Use
  Company Number: PHEH2009US04660

PATIENT
  Sex: Female
  Weight: 76.19 kg

DRUGS (6)
  1. RECLAST [Suspect]
     Dosage: UNK
     Dates: start: 20090403
  2. VALIUM [Concomitant]
  3. PERCOCET [Concomitant]
  4. MUSCLE RELAXANTS [Concomitant]
  5. OXYCODONE HCL [Concomitant]
     Dosage: OXY10/ROX325, 1 Q4-6HRS PRN
     Route: 048
  6. LIDODERM [Concomitant]
     Dosage: 5% 1-3, Q12HR ON 12 OFF
     Route: 061

REACTIONS (2)
  - MUSCULAR WEAKNESS [None]
  - WALKING AID USER [None]
